FAERS Safety Report 21658728 (Version 1)
Quarter: 2022Q4

REPORT INFORMATION
  Report Type: Spontaneous
  Country: JP (occurrence: JP)
  Receive Date: 20221129
  Receipt Date: 20221129
  Transmission Date: 20230113
  Serious: Yes (Hospitalization)
  Sender: FDA-Public Use
  Company Number: JP-ELI_LILLY_AND_COMPANY-JP202211009520

PATIENT
  Age: 75 Year
  Sex: Female

DRUGS (2)
  1. OLUMIANT [Suspect]
     Active Substance: BARICITINIB
     Indication: Rheumatoid arthritis
     Dosage: 4 MG, DAILY
     Route: 048
     Dates: start: 2020, end: 20221116
  2. IGURATIMOD [Suspect]
     Active Substance: IGURATIMOD
     Indication: Rheumatoid arthritis
     Dosage: UNK
     Route: 048
     Dates: start: 2020, end: 20221116

REACTIONS (1)
  - Pancytopenia [Unknown]

NARRATIVE: CASE EVENT DATE: 20221116
